FAERS Safety Report 8510926-5 (Version None)
Quarter: 2012Q3

REPORT INFORMATION
  Report Type: 
  Country: None (occurrence: None)
  Receive Date: 20120716
  Receipt Date: 20120711
  Transmission Date: 20120928
  Serious: Yes (Life-Threatening, Hospitalization, Disabling, Other)
  Sender: FDA-Public Use
  Company Number: IL-SHIRE-ALL1-2012-00998

PATIENT
  Sex: Female

DRUGS (4)
  1. CALTRATE                           /00944201/ [Concomitant]
     Indication: PRODUCT USED FOR UNKNOWN INDICATION
     Dosage: UNK UNK, UNKNOWN
     Route: 048
  2. FOSRENOL [Suspect]
     Indication: HYPERPHOSPHATAEMIA
     Dosage: 1 G, 3X/DAY:TID (3000 MG DAILY)
     Route: 048
     Dates: start: 20110901, end: 20111201
  3. FOSRENOL [Suspect]
     Indication: RENAL FAILURE CHRONIC
     Dosage: 4.5 G, 1X/DAY:QD (4500 MG DAILY DOSE)
     Route: 048
     Dates: start: 20111201, end: 20120108
  4. OXYCODONE HCL [Concomitant]
     Indication: BONE PAIN
     Dosage: 10 MG, 2X/DAY:BID
     Route: 048
     Dates: start: 20090101

REACTIONS (3)
  - PERITONITIS [None]
  - LARGE INTESTINE PERFORATION [None]
  - CONSTIPATION [None]
